FAERS Safety Report 8154434-2 (Version None)
Quarter: 2012Q1

REPORT INFORMATION
  Report Type: 
  Country: None (occurrence: None)
  Receive Date: 20120217
  Receipt Date: 20120217
  Transmission Date: 20120608
  Serious: No
  Sender: FDA-Public Use
  Company Number: None

PATIENT
  Sex: Female

DRUGS (1)
  1. SEASONALE [Suspect]
     Dosage: SEASONALE 0.15-0.03MG DAILY PO
     Route: 048
     Dates: start: 20111227, end: 20120202

REACTIONS (2)
  - METRORRHAGIA [None]
  - PRODUCT SUBSTITUTION ISSUE [None]
